FAERS Safety Report 4389544-9 (Version None)
Quarter: 2004Q2

REPORT INFORMATION
  Report Type: 
  Country: None (occurrence: None)
  Receive Date: 20040629
  Receipt Date: 20030903
  Transmission Date: 20050107
  Serious: Yes (Other)
  Sender: FDA-Public Use
  Company Number: NSADSS2003024223

PATIENT
  Age: 45 Year
  Sex: Female

DRUGS (6)
  1. DURAGESIC [Suspect]
     Indication: PAIN
     Dosage: 50 UG/HR, TRANSDERMAL
     Route: 062
     Dates: start: 20020101, end: 20030517
  2. EFFEXOR [Concomitant]
  3. PREMARIN [Concomitant]
  4. SOMA [Concomitant]
  5. SYNTHROID [Concomitant]
  6. NAPROXEN [Concomitant]

REACTIONS (2)
  - AGITATION [None]
  - ANXIETY [None]
